FAERS Safety Report 19840306 (Version 1)
Quarter: 2021Q3

REPORT INFORMATION
  Report Type: Spontaneous
  Country: US (occurrence: US)
  Receive Date: 20210916
  Receipt Date: 20210916
  Transmission Date: 20211014
  Serious: Yes (Death)
  Sender: FDA-Public Use
  Company Number: None

PATIENT
  Age: 67 Year
  Sex: Female

DRUGS (1)
  1. WARFARIN [Suspect]
     Active Substance: WARFARIN

REACTIONS (7)
  - Upper gastrointestinal haemorrhage [None]
  - Weight decreased [None]
  - International normalised ratio increased [None]
  - Unresponsive to stimuli [None]
  - Decreased appetite [None]
  - Hypotension [None]
  - Faeces discoloured [None]

NARRATIVE: CASE EVENT DATE: 20210817
